FAERS Safety Report 13295900 (Version 1)
Quarter: 2017Q1

REPORT INFORMATION
  Report Type: Spontaneous
  Country: US (occurrence: US)
  Receive Date: 20170303
  Receipt Date: 20170303
  Transmission Date: 20170428
  Serious: Yes (Death, Hospitalization, Other)
  Sender: FDA-Public Use
  Company Number: US-BIOMARINAP-US-2017-113068

PATIENT
  Age: 3 Year
  Sex: Male
  Weight: 18 kg

DRUGS (1)
  1. ALDURAZYME [Suspect]
     Active Substance: LARONIDASE
     Indication: MUCOPOLYSACCHARIDOSIS I
     Dosage: UNK
     Route: 042
     Dates: start: 20160307

REACTIONS (8)
  - Pulmonary haemorrhage [Unknown]
  - Death [Fatal]
  - Hypoxia [Unknown]
  - Pyrexia [Unknown]
  - Lymph gland infection [Unknown]
  - Metabolic alkalosis [Recovering/Resolving]
  - Bronchospasm [Unknown]
  - Fluid overload [Unknown]

NARRATIVE: CASE EVENT DATE: 20170116
